FAERS Safety Report 23294723 (Version 1)
Quarter: 2023Q4

REPORT INFORMATION
  Report Type: Spontaneous
  Country: CN (occurrence: CN)
  Receive Date: 20231213
  Receipt Date: 20231213
  Transmission Date: 20240110
  Serious: Yes (Other)
  Sender: FDA-Public Use
  Company Number: CN-BEH-2023166228

PATIENT
  Age: 69 Year
  Sex: Male

DRUGS (2)
  1. ALBURX [Suspect]
     Active Substance: ALBUMIN HUMAN
     Indication: Protein total decreased
     Dosage: 10 GRAM, OD
     Route: 041
     Dates: start: 20231124, end: 20231127
  2. ALBURX [Suspect]
     Active Substance: ALBUMIN HUMAN
     Dosage: UNK
     Route: 041
     Dates: start: 20231126, end: 20231126

REACTIONS (7)
  - Drug hypersensitivity [Recovering/Resolving]
  - Tachypnoea [Recovering/Resolving]
  - Erythema [Recovering/Resolving]
  - Palpitations [Recovering/Resolving]
  - Pruritus [Recovering/Resolving]
  - Hypotension [Recovering/Resolving]
  - Oxygen saturation decreased [Recovering/Resolving]

NARRATIVE: CASE EVENT DATE: 20231126
